FAERS Safety Report 5461084-5 (Version None)
Quarter: 2007Q3

REPORT INFORMATION
  Report Type: 
  Country: None (occurrence: None)
  Receive Date: 20070918
  Receipt Date: 20070918
  Transmission Date: 20080115
  Serious: Yes (Life-Threatening, Disabling)
  Sender: FDA-Public Use
  Company Number: None

PATIENT
  Age: 4 Day
  Sex: Male
  Weight: 3.8102 kg

DRUGS (1)
  1. ACETAMINOPHEN AND OXYCODONE [Suspect]
     Indication: PAIN
     Dates: start: 20050818, end: 20050822

REACTIONS (7)
  - DRUG EXPOSURE VIA BREAST MILK [None]
  - HEART RATE DECREASED [None]
  - HYPOTONIA NEONATAL [None]
  - LETHARGY [None]
  - MEDICATION ERROR [None]
  - NEONATAL RESPIRATORY DISTRESS SYNDROME [None]
  - UNRESPONSIVE TO STIMULI [None]
